FAERS Safety Report 9471271 (Version 1)
Quarter: 2013Q3

REPORT INFORMATION
  Report Type: Spontaneous
  Country: FR (occurrence: FR)
  Receive Date: 20130822
  Receipt Date: 20130822
  Transmission Date: 20140515
  Serious: Yes (Hospitalization)
  Sender: FDA-Public Use
  Company Number: FR-TEVA-426265ISR

PATIENT
  Age: 55 Year
  Sex: Female

DRUGS (6)
  1. AZILECT 1 MG [Suspect]
     Indication: PARKINSON^S DISEASE
     Dosage: 1 MILLIGRAM DAILY;
     Route: 048
     Dates: end: 20130319
  2. MODOPAR [Concomitant]
     Indication: PARKINSON^S DISEASE
     Route: 048
  3. SIFROL [Concomitant]
     Indication: PARKINSON^S DISEASE
     Route: 048
  4. LEVOTHYROX [Concomitant]
     Indication: HYPOTHYROIDISM
     Route: 048
  5. STILNOX [Concomitant]
     Indication: INSOMNIA
     Route: 048
  6. MOTILIUM [Concomitant]
     Indication: NAUSEA
     Route: 048

REACTIONS (1)
  - Iron deficiency anaemia [Recovered/Resolved]
